FAERS Safety Report 18313905 (Version 1)
Quarter: 2020Q3

REPORT INFORMATION
  Report Type: Spontaneous
  Country: US (occurrence: US)
  Receive Date: 20200925
  Receipt Date: 20200925
  Transmission Date: 20201103
  Serious: Yes (Hospitalization)
  Sender: FDA-Public Use
  Company Number: US-MYLANLABS-2020M1082068

PATIENT
  Age: 94 Year
  Sex: Female

DRUGS (8)
  1. METRONIDAZOLE. [Concomitant]
     Active Substance: METRONIDAZOLE
     Indication: COLITIS
     Route: 042
  2. DONEPEZIL. [Suspect]
     Active Substance: DONEPEZIL
     Dosage: 10 MILLIGRAM, QD STARTED A YEAR PRIOR TO CURRENT PRESENTATION
     Route: 065
  3. DONEPEZIL. [Suspect]
     Active Substance: DONEPEZIL
     Indication: PRODUCT USED FOR UNKNOWN INDICATION
     Dosage: 5 MILLIGRAM, QD
     Route: 065
  4. ATORVASTATIN [Concomitant]
     Active Substance: ATORVASTATIN
     Indication: PRODUCT USED FOR UNKNOWN INDICATION
     Dosage: 40 MILLIGRAM NIGHTLY
     Route: 065
  5. CIPROFLOXACIN. [Concomitant]
     Active Substance: CIPROFLOXACIN
     Indication: COLITIS
     Route: 042
  6. METOPROLOL. [Suspect]
     Active Substance: METOPROLOL
     Indication: PRODUCT USED FOR UNKNOWN INDICATION
     Dosage: 50 MILLIGRAM NIGHTLY
     Route: 065
  7. ASPIRIN                            /00002701/ [Concomitant]
     Active Substance: ASPIRIN
     Indication: PRODUCT USED FOR UNKNOWN INDICATION
     Dosage: 81 MILLIGRAM, QD
     Route: 065
  8. ESOMEPRAZOLE. [Concomitant]
     Active Substance: ESOMEPRAZOLE MAGNESIUM
     Indication: PRODUCT USED FOR UNKNOWN INDICATION
     Dosage: 40 MILLIGRAM, QD
     Route: 065

REACTIONS (21)
  - Slow response to stimuli [Recovered/Resolved]
  - Toxicity to various agents [Recovered/Resolved]
  - Vomiting [Recovered/Resolved]
  - Somnolence [Recovered/Resolved]
  - Hyperhidrosis [Recovered/Resolved]
  - Lethargy [Recovered/Resolved]
  - Abdominal pain [Recovered/Resolved]
  - Mental status changes [Recovered/Resolved]
  - Gait inability [Recovered/Resolved]
  - Diarrhoea [Recovered/Resolved]
  - Abdominal discomfort [Recovered/Resolved]
  - Electrocardiogram T wave abnormal [Recovered/Resolved]
  - Salivary hypersecretion [Recovered/Resolved]
  - Weight decreased [Recovered/Resolved]
  - Aphasia [Recovered/Resolved]
  - Sinus bradycardia [Recovered/Resolved]
  - Hyperglycaemia [Recovered/Resolved]
  - Hypothermia [Recovered/Resolved]
  - Fatigue [Recovered/Resolved]
  - Nausea [Recovered/Resolved]
  - Hypocapnia [Recovered/Resolved]
